FAERS Safety Report 6005664-7 (Version None)
Quarter: 2008Q4

REPORT INFORMATION
  Report Type: 
  Country: None (occurrence: None)
  Receive Date: 20081217
  Receipt Date: 20081204
  Transmission Date: 20090506
  Serious: Yes (Other)
  Sender: FDA-Public Use
  Company Number: ES-CELGENEUS-AZAES200800376

PATIENT
  Sex: Female
  Weight: 71 kg

DRUGS (5)
  1. AZACITIDINE [Suspect]
     Indication: MYELODYSPLASTIC SYNDROME
     Route: 058
     Dates: start: 20080601
  2. AZACITIDINE [Suspect]
     Route: 058
     Dates: start: 20080701
  3. AZACITIDINE [Suspect]
     Route: 058
     Dates: start: 20080801
  4. AZACITIDINE [Suspect]
     Route: 058
     Dates: start: 20080901
  5. AZACITIDINE [Suspect]
     Route: 058
     Dates: start: 20081006, end: 20081010

REACTIONS (2)
  - ABORTION INDUCED [None]
  - FIRST TRIMESTER PREGNANCY [None]
